FAERS Safety Report 7546329-X (Version None)
Quarter: 2011Q2

REPORT INFORMATION
  Report Type: 
  Country: None (occurrence: None)
  Receive Date: 20110607
  Receipt Date: 20110523
  Transmission Date: 20111010
  Serious: Yes (Hospitalization)
  Sender: FDA-Public Use
  Company Number: DSJ-2011-10221

PATIENT
  Age: 67 Year
  Sex: Female

DRUGS (5)
  1. HYDROCHLOROTHIAZIDE [Concomitant]
  2. LEVOTHYROXINE SODIUM (LEVOTHYROXINE SODIUM) (LEVOTHYROXINE SODIUM) [Concomitant]
  3. SIMVASTATIN [Concomitant]
  4. CLONAZEPAM [Concomitant]
  5. BENICAR [Suspect]
     Indication: HYPERTENSION
     Dosage: 20 MG (20 MG, 1 IN 1 D), PER ORAL
     Route: 048
     Dates: start: 20050101

REACTIONS (2)
  - POST PROCEDURAL HYPOTHYROIDISM [None]
  - DRUG INEFFECTIVE [None]
